FAERS Safety Report 7748900-9 (Version None)
Quarter: 2011Q3

REPORT INFORMATION
  Report Type: 
  Country: None (occurrence: None)
  Receive Date: 20110914
  Receipt Date: 20110901
  Transmission Date: 20111222
  Serious: Yes (Hospitalization, Other)
  Sender: FDA-Public Use
  Company Number: KR-RANBAXY-2011RR-46985

PATIENT
  Age: 79 Year
  Sex: Female

DRUGS (3)
  1. NAPROXEN [Suspect]
     Indication: OSTEOARTHRITIS
     Dosage: 275 MG, UNK
     Route: 065
  2. PIROXICAM [Suspect]
     Indication: OSTEOARTHRITIS
     Dosage: 20 MG, UNK
     Route: 065
  3. DICLOFENAC SODIUM [Suspect]
     Indication: OSTEOARTHRITIS
     Dosage: 25 MG DAILY
     Route: 065

REACTIONS (1)
  - DIAPHRAGMATIC DISORDER [None]
